FAERS Safety Report 7357661-7 (Version None)
Quarter: 2011Q1

REPORT INFORMATION
  Report Type: 
  Country: None (occurrence: None)
  Receive Date: 20110317
  Receipt Date: 20110310
  Transmission Date: 20110831
  Serious: Yes (Life-Threatening, Hospitalization)
  Sender: FDA-Public Use
  Company Number: US-ELI_LILLY_AND_COMPANY-US201103004607

PATIENT
  Sex: Male
  Weight: 73.424 kg

DRUGS (16)
  1. ACETAMINOPHEN [Concomitant]
     Dosage: 650 MG, UNK
     Route: 048
  2. ALBUTEROL [Concomitant]
     Dosage: 90 UG, EVERY 6 HRS
  3. IBUPROFEN [Concomitant]
     Dosage: 600 MG, UNK
     Route: 048
  4. KETALAR [Concomitant]
     Dosage: 15 MG, UNK
     Route: 042
  5. HUMULIN R [Suspect]
     Dosage: UNK, AS NEEDED
     Route: 058
     Dates: start: 20110305
  6. OXYCODONE HCL [Concomitant]
     Dosage: 10 MG, UNK
     Route: 048
  7. CEFAZOLIN [Concomitant]
     Dosage: 1 G, UNK
     Route: 042
  8. COSYNTROPIN [Concomitant]
     Dosage: 0.25 MG, UNK
     Route: 042
  9. MAGNESIUM SULFATE [Concomitant]
     Dosage: 2 G, UNK
     Route: 042
  10. DUONEB [Concomitant]
     Dosage: 3 ML, AS NEEDED
     Route: 055
  11. ACETYLCYSTEINE [Concomitant]
     Dosage: 2 ML, EVERY 4 HRS
     Route: 055
  12. SODIUM PHOSPHATE [Concomitant]
     Dosage: 12 D/F, UNK
     Route: 042
  13. ADVAIR DISKUS 100/50 [Concomitant]
     Dosage: UNK, 2/D
     Route: 055
  14. METOPROLOL [Concomitant]
     Dosage: 25 MG, 2/D
     Route: 048
  15. CALCIUM GLUCONATE [Concomitant]
     Dosage: 1 G, UNK
     Route: 042
  16. HEPARIN [Concomitant]
     Indication: THROMBOSIS PROPHYLAXIS
     Dosage: 5000 U, EVERY 8 HRS
     Route: 058
     Dates: start: 20110305

REACTIONS (2)
  - WRONG DRUG ADMINISTERED [None]
  - HYPOGLYCAEMIC UNCONSCIOUSNESS [None]
